FAERS Safety Report 7599266-9 (Version None)
Quarter: 2011Q3

REPORT INFORMATION
  Report Type: 
  Country: None (occurrence: None)
  Receive Date: 20110711
  Receipt Date: 20110329
  Transmission Date: 20111222
  Serious: Yes (Other)
  Sender: FDA-Public Use
  Company Number: BR-BAYER-201020900LA

PATIENT
  Age: 34 Year
  Sex: Female
  Weight: 76 kg

DRUGS (2)
  1. YAZ [Suspect]
     Indication: CONTRACEPTION
     Route: 048
     Dates: start: 20100101, end: 20101109
  2. FLUOXETINA [Concomitant]
     Indication: STRESS
     Route: 048
     Dates: start: 20101110

REACTIONS (9)
  - DIZZINESS [None]
  - MENSTRUAL DISORDER [None]
  - DECREASED APPETITE [None]
  - PANIC DISORDER [None]
  - WEIGHT DECREASED [None]
  - DYSPHORIA [None]
  - BREAST PAIN [None]
  - BREAST DISCOMFORT [None]
  - DEPRESSION [None]
